FAERS Safety Report 5869933-3 (Version None)
Quarter: 2008Q3

REPORT INFORMATION
  Report Type: 
  Country: None (occurrence: None)
  Receive Date: 20080904
  Receipt Date: 20080902
  Transmission Date: 20090109
  Serious: Yes (Other)
  Sender: FDA-Public Use
  Company Number: US-BRISTOL-MYERS SQUIBB COMPANY-14321665

PATIENT
  Age: 66 Year
  Sex: Male
  Weight: 79 kg

DRUGS (8)
  1. ERBITUX [Suspect]
     Indication: RECTAL CANCER
     Dosage: LOADING DOSE:400MG/M2; 820MG ((27FEB07), 250MG/M2 AND 500MG IV WEEKLY.
     Route: 042
     Dates: start: 20070227
  2. FLUOROURACIL [Concomitant]
     Dates: start: 20070227
  3. LEUCOVORIN CALCIUM [Concomitant]
     Dates: start: 20070227
  4. LIPITOR [Concomitant]
  5. ASPIRIN [Concomitant]
  6. CLINDAMYCIN HCL [Concomitant]
     Route: 061
  7. LISINOPRIL [Concomitant]
  8. CARVEDILOL [Concomitant]

REACTIONS (1)
  - EJECTION FRACTION DECREASED [None]
